FAERS Safety Report 10784402 (Version 1)
Quarter: 2015Q1

REPORT INFORMATION
  Report Type: Spontaneous
  Country: US (occurrence: None)
  Receive Date: 20150209
  Receipt Date: 20150209
  Transmission Date: 20150721
  Serious: No
  Sender: FDA-Public Use
  Company Number: None

PATIENT
  Age: 38 Year
  Sex: Male
  Weight: 70.31 kg

DRUGS (1)
  1. CHANTIX [Suspect]
     Active Substance: VARENICLINE TARTRATE
     Indication: SMOKING CESSATION THERAPY
     Dosage: 2 PILLS
     Route: 048
     Dates: start: 20150124, end: 20150205

REACTIONS (3)
  - Mood swings [None]
  - Dizziness [None]
  - Depression [None]

NARRATIVE: CASE EVENT DATE: 20150205
